FAERS Safety Report 9080295 (Version 1)
Quarter: 2013Q1

REPORT INFORMATION
  Report Type: Report from Study
  Country: US (occurrence: US)
  Receive Date: 20130130
  Receipt Date: 20130130
  Transmission Date: 20140127
  Serious: No
  Sender: FDA-Public Use
  Company Number: US-ABBOTT-12P-163-0969965-00

PATIENT
  Age: 64 Year
  Sex: Female

DRUGS (4)
  1. HUMIRA 40 MG/0.8 ML PEN [Suspect]
     Indication: PSORIASIS
     Dosage: LOADING DOSE
     Route: 058
     Dates: start: 20120817, end: 20120817
  2. HUMIRA 40 MG/0.8 ML PEN [Suspect]
     Route: 058
  3. LYSINE [Concomitant]
     Indication: ORAL HERPES
     Dosage: 1000MG DAILY
     Route: 048
  4. ABREVA [Concomitant]
     Indication: ORAL HERPES
     Route: 061

REACTIONS (1)
  - Dysgeusia [Recovered/Resolved]
